FAERS Safety Report 6163594-4 (Version None)
Quarter: 2009Q2

REPORT INFORMATION
  Report Type: 
  Country: None (occurrence: None)
  Receive Date: 20090420
  Receipt Date: 20090402
  Transmission Date: 20091009
  Serious: Yes (Hospitalization)
  Sender: FDA-Public Use
  Company Number: 8044753

PATIENT
  Age: 64 Year
  Sex: Male

DRUGS (13)
  1. PREDNISOLONE [Suspect]
     Dosage: 5 MG 1/D
  2. CP-751871 [Suspect]
     Indication: PROSTATE CANCER
     Dosage: 10 MG/KG IV
     Route: 042
     Dates: start: 20080923, end: 20090127
  3. DOCETAXEL [Suspect]
     Indication: PROSTATE CANCER
     Dosage: 75 MG/KG IV
     Route: 042
     Dates: start: 20080722, end: 20090127
  4. INNOHEP /01707902/ [Suspect]
     Indication: ATRIAL FIBRILLATION
     Dosage: 16000 IU SC
     Route: 058
  5. ANTAZOLINE SULPHATE [Concomitant]
  6. DIPROBASE /01132701/ [Concomitant]
  7. MOVICOL /01053601/ [Concomitant]
  8. OXYCONTIN [Concomitant]
  9. PARACETAMOL [Concomitant]
  10. VALSARTAN [Concomitant]
  11. VENLAFAXINE HCL [Concomitant]
  12. VERAPAMIL [Concomitant]
  13. ZOLADEX /00732102/ [Concomitant]

REACTIONS (3)
  - EPISTAXIS [None]
  - OESOPHAGEAL ULCER [None]
  - UPPER GASTROINTESTINAL HAEMORRHAGE [None]
